FAERS Safety Report 20119642 (Version 1)
Quarter: 2021Q4

REPORT INFORMATION
  Report Type: Spontaneous
  Country: CN (occurrence: None)
  Receive Date: 20211126
  Receipt Date: 20211126
  Transmission Date: 20220303
  Serious: Yes (Other)
  Sender: FDA-Public Use
  Company Number: 2021A823978

PATIENT
  Age: 20709 Day
  Sex: Female

DRUGS (3)
  1. TICAGRELOR [Suspect]
     Active Substance: TICAGRELOR
     Indication: Coronary artery disease
     Dosage: ASTRAZENECA
     Route: 048
     Dates: start: 20211107, end: 20211110
  2. TICAGRELOR [Suspect]
     Active Substance: TICAGRELOR
     Indication: Coronary artery disease
     Dosage: MANUFACTURER: NANJING CHIA TAI TIANQING PHARMACEUTICAL CO., LTD.
     Route: 048
     Dates: start: 20211101, end: 20211106
  3. ASPIRIN [Suspect]
     Active Substance: ASPIRIN
     Indication: Coronary artery disease
     Route: 048
     Dates: start: 20211101, end: 20211110

REACTIONS (3)
  - Red blood cell count decreased [Unknown]
  - Haemoglobin decreased [Unknown]
  - Ecchymosis [Not Recovered/Not Resolved]

NARRATIVE: CASE EVENT DATE: 20211110
